FAERS Safety Report 9720892 (Version 1)
Quarter: 2013Q4

REPORT INFORMATION
  Report Type: Report from Study
  Country: CA (occurrence: CA)
  Receive Date: 20131129
  Receipt Date: 20131129
  Transmission Date: 20140711
  Serious: Yes (Other)
  Sender: FDA-Public Use
  Company Number: CA-JNJFOC-20131115375

PATIENT
  Sex: Female
  Weight: 60 kg

DRUGS (3)
  1. REMICADE [Suspect]
     Indication: RHEUMATOID ARTHRITIS
     Route: 042
     Dates: start: 2011
  2. METHOTREXATE [Concomitant]
     Dosage: 6 TABLETS WEEKLY
     Route: 065
  3. FOLIC ACID [Concomitant]
     Dosage: HALF TABLET MONDAY PLUS TUESDAY
     Route: 065

REACTIONS (1)
  - Cataract [Not Recovered/Not Resolved]
